FAERS Safety Report 23669680 (Version 1)
Quarter: 2024Q1

REPORT INFORMATION
  Report Type: Spontaneous
  Country: CN (occurrence: CN)
  Receive Date: 20240325
  Receipt Date: 20240325
  Transmission Date: 20240409
  Serious: Yes (Other)
  Sender: FDA-Public Use
  Company Number: CN-PFIZER INC-PV202400038875

PATIENT
  Age: 35 Year
  Sex: Female
  Weight: 64.5 kg

DRUGS (4)
  1. EPIRUBICIN HYDROCHLORIDE [Suspect]
     Active Substance: EPIRUBICIN HYDROCHLORIDE
     Indication: Breast cancer
     Dosage: 110 MG, 1X/DAY
     Route: 042
     Dates: start: 20240313, end: 20240313
  2. PACLITAXEL [Suspect]
     Active Substance: PACLITAXEL
     Indication: Breast cancer
     Dosage: 400 MG, 1X/DAY
     Route: 041
     Dates: start: 20240313, end: 20240313
  3. SODIUM CHLORIDE [Concomitant]
     Indication: Vehicle solution use
     Dosage: 70 ML, 1X/DAY
     Route: 042
     Dates: start: 20240313, end: 20240313
  4. SODIUM CHLORIDE [Concomitant]
     Indication: Vehicle solution use
     Dosage: 80 ML, 1X/DAY
     Route: 041
     Dates: start: 20240313, end: 20240313

REACTIONS (7)
  - Gastrointestinal disorder [Recovering/Resolving]
  - Gastrooesophageal reflux disease [Recovering/Resolving]
  - Dyspepsia [Recovering/Resolving]
  - Nausea [Recovering/Resolving]
  - Vomiting [Recovering/Resolving]
  - Asthenia [Recovering/Resolving]
  - Decreased appetite [Recovering/Resolving]

NARRATIVE: CASE EVENT DATE: 20240314
